FAERS Safety Report 22268763 (Version 1)
Quarter: 2023Q2

REPORT INFORMATION
  Report Type: Other
  Country: CA (occurrence: CA)
  Receive Date: 20230501
  Receipt Date: 20230501
  Transmission Date: 20230721
  Serious: Yes (Disabling)
  Sender: FDA-Public Use
  Company Number: CA-TOLMAR, INC.-23CA040452

PATIENT
  Age: 61 Year
  Sex: Male

DRUGS (1)
  1. ELIGARD [Suspect]
     Active Substance: LEUPROLIDE ACETATE
     Indication: Prostate cancer
     Dosage: 30 MILLIGRAM, Q 4 MONTH
     Route: 030

REACTIONS (6)
  - Walking aid user [Recovered/Resolved]
  - Incorrect dose administered [Recovered/Resolved]
  - Incorrect route of product administration [Unknown]
  - Device issue [Recovered/Resolved]
  - Pain [Recovered/Resolved]
  - Injection site pain [Recovered/Resolved]
